FAERS Safety Report 9235549 (Version 1)
Quarter: 2013Q2

REPORT INFORMATION
  Report Type: Spontaneous
  Country: US (occurrence: None)
  Receive Date: 20130416
  Receipt Date: 20130416
  Transmission Date: 20140414
  Serious: Yes (Hospitalization)
  Sender: FDA-Public Use
  Company Number: None

PATIENT
  Age: 47 Year
  Sex: Female
  Weight: 68.3 kg

DRUGS (2)
  1. REVLIMID [Suspect]
     Indication: WALDENSTROM^S MACROGLOBULINAEMIA
     Dosage: ONCE PER DAY
     Route: 048
     Dates: start: 20130405, end: 20130410
  2. RITUXIN [Suspect]
     Indication: WALDENSTROM^S MACROGLOBULINAEMIA
     Route: 041
     Dates: start: 20130404, end: 20130404

REACTIONS (8)
  - Pyrexia [None]
  - Chills [None]
  - Muscle tightness [None]
  - Oropharyngeal pain [None]
  - Tachycardia [None]
  - Anaemia [None]
  - Oesophageal pain [None]
  - Hypotension [None]
